FAERS Safety Report 7550858-2 (Version None)
Quarter: 2011Q2

REPORT INFORMATION
  Report Type: 
  Country: None (occurrence: None)
  Receive Date: 20110616
  Receipt Date: 20110613
  Transmission Date: 20111010
  Serious: No
  Sender: FDA-Public Use
  Company Number: US-PFIZER INC-2011129943

PATIENT
  Sex: Male

DRUGS (2)
  1. LIPITOR [Suspect]
     Dosage: 10 MG, UNK
  2. SIMVASTATIN [Suspect]
     Dosage: 20 MG, UNK

REACTIONS (3)
  - FEELING ABNORMAL [None]
  - HIGH DENSITY LIPOPROTEIN DECREASED [None]
  - PAIN [None]
